FAERS Safety Report 7935638-8 (Version None)
Quarter: 2011Q4

REPORT INFORMATION
  Report Type: 
  Country: None (occurrence: None)
  Receive Date: 20111123
  Receipt Date: 20111111
  Transmission Date: 20120403
  Serious: Yes (Other)
  Sender: FDA-Public Use
  Company Number: US-ELI_LILLY_AND_COMPANY-US201111004893

PATIENT
  Sex: Female

DRUGS (12)
  1. HUMULIN R [Suspect]
     Dosage: UNK, UNKNOWN
  2. HUMALOG [Suspect]
     Dosage: 3 U, QD
  3. HUMULIN R [Suspect]
     Dosage: UNK, UNKNOWN
  4. HUMULIN N [Suspect]
     Dosage: UNK, UNKNOWN
  5. HUMALOG [Suspect]
     Indication: DIABETES MELLITUS
     Dosage: 7 U, QD
  6. HUMULIN R [Suspect]
     Dosage: UNK, UNKNOWN
  7. LANTUS [Concomitant]
     Dosage: UNK
  8. HUMALOG [Suspect]
     Dosage: 3 U, QD
  9. HUMALOG [Suspect]
     Dosage: UNK, PRN
  10. HUMULIN N [Suspect]
     Dosage: UNK, UNKNOWN
  11. HUMALOG [Suspect]
     Dosage: UNK, UNKNOWN
  12. HUMALOG [Suspect]
     Dosage: UNK, PRN

REACTIONS (3)
  - BLOOD GLUCOSE INCREASED [None]
  - WRONG TECHNIQUE IN DRUG USAGE PROCESS [None]
  - MEMORY IMPAIRMENT [None]
